FAERS Safety Report 23336583 (Version 1)
Quarter: 2023Q4

REPORT INFORMATION
  Report Type: Spontaneous
  Country: US (occurrence: US)
  Receive Date: 20231226
  Receipt Date: 20231226
  Transmission Date: 20240110
  Serious: Yes (Other)
  Sender: FDA-Public Use
  Company Number: US-ABBVIE-5555359

PATIENT
  Age: 50 Year
  Sex: Male

DRUGS (1)
  1. BOTOX [Suspect]
     Active Substance: ONABOTULINUMTOXINA
     Indication: Middle cerebral artery stroke
     Route: 065

REACTIONS (5)
  - Depression [Unknown]
  - Fatigue [Unknown]
  - Suicidal ideation [Unknown]
  - Speech disorder [Unknown]
  - Affective disorder [Unknown]
